FAERS Safety Report 13835962 (Version 3)
Quarter: 2018Q3

REPORT INFORMATION
  Report Type: Spontaneous
  Country: US (occurrence: US)
  Receive Date: 20170804
  Receipt Date: 20180828
  Transmission Date: 20181010
  Serious: No
  Sender: FDA-Public Use
  Company Number: US-ASTRAZENECA-2017SE79247

PATIENT
  Sex: Male
  Weight: 78.4 kg

DRUGS (1)
  1. TUDORZA PRESSAIR [Suspect]
     Active Substance: ACLIDINIUM BROMIDE
     Indication: CHRONIC OBSTRUCTIVE PULMONARY DISEASE
     Dosage: 400UG, ONE INHALATION, TWO TIMES A DAY
     Route: 055
     Dates: start: 2013

REACTIONS (5)
  - Visual impairment [Not Recovered/Not Resolved]
  - Intentional device misuse [Unknown]
  - Hypoacusis [Not Recovered/Not Resolved]
  - Device issue [Unknown]
  - Memory impairment [Not Recovered/Not Resolved]
